FAERS Safety Report 7715951-X (Version None)
Quarter: 2011Q3

REPORT INFORMATION
  Report Type: 
  Country: None (occurrence: None)
  Receive Date: 20110829
  Receipt Date: 20110815
  Transmission Date: 20111222
  Serious: Yes (Hospitalization)
  Sender: FDA-Public Use
  Company Number: DE-ELI_LILLY_AND_COMPANY-DE201107004371

PATIENT
  Age: 72 Year
  Sex: Female

DRUGS (4)
  1. MAGNESIUM [Concomitant]
  2. MARCUMAR [Concomitant]
  3. FORTEO [Suspect]
     Dosage: UNK, QD
     Route: 058
     Dates: start: 20110416, end: 20110701
  4. CALCIUM D3 [Concomitant]

REACTIONS (5)
  - CHILLS [None]
  - DECREASED APPETITE [None]
  - DIARRHOEA [None]
  - DEPRESSION [None]
  - NAUSEA [None]
